FAERS Safety Report 8548588-3 (Version None)
Quarter: 2012Q2

REPORT INFORMATION
  Report Type: 
  Country: None (occurrence: None)
  Receive Date: 20120416
  Receipt Date: 20110623
  Transmission Date: 20120825
  Serious: Yes (Other)
  Sender: FDA-Public Use
  Company Number: PHHY2011US40200

PATIENT
  Age: 45 Year
  Sex: Male

DRUGS (2)
  1. DIOVAN [Suspect]
  2. LOPRESSOR [Suspect]
     Dosage: 50 MG

REACTIONS (4)
  - BLOOD PRESSURE INCREASED [None]
  - ANXIETY [None]
  - HEADACHE [None]
  - DRUG INEFFECTIVE [None]
